FAERS Safety Report 5330143-X (Version None)
Quarter: 2007Q2

REPORT INFORMATION
  Report Type: 
  Country: None (occurrence: None)
  Receive Date: 20070521
  Receipt Date: 20070430
  Transmission Date: 20071010
  Serious: No
  Sender: FDA-Public Use
  Company Number: US-JNJFOC-20070500531

PATIENT
  Age: 25 Year
  Sex: Female

DRUGS (3)
  1. INVEGA [Suspect]
     Indication: DRUG USE FOR UNKNOWN INDICATION
     Route: 048
  2. CLARINEX D [Concomitant]
     Route: 048
  3. SPIRONOLACTONE [Concomitant]
     Route: 048

REACTIONS (2)
  - FLUSHING [None]
  - RASH [None]
